FAERS Safety Report 10056164 (Version 2)
Quarter: 2014Q2

REPORT INFORMATION
  Report Type: Spontaneous
  Country: US (occurrence: US)
  Receive Date: 20140403
  Receipt Date: 20140513
  Transmission Date: 20141212
  Serious: No
  Sender: FDA-Public Use
  Company Number: US-009507513-1403USA011635

PATIENT
  Age: 28 Year
  Sex: Female
  Weight: 126.53 kg

DRUGS (2)
  1. NEXPLANON [Suspect]
     Indication: CONTRACEPTION
     Dosage: 1 ROD/THREE YEARS
     Route: 059
     Dates: start: 20130321, end: 20140311
  2. NEXPLANON [Suspect]
     Dosage: UNK
     Route: 059
     Dates: start: 20140311

REACTIONS (2)
  - Device breakage [Recovered/Resolved]
  - No adverse event [Unknown]
